FAERS Safety Report 6093802-X (Version None)
Quarter: 2009Q1

REPORT INFORMATION
  Report Type: 
  Country: None (occurrence: None)
  Receive Date: 20090223
  Receipt Date: 20090206
  Transmission Date: 20090719
  Serious: Yes (Hospitalization)
  Sender: FDA-Public Use
  Company Number: 8043081

PATIENT
  Age: 71 Year
  Sex: Male
  Weight: 59 kg

DRUGS (5)
  1. XYZAL [Suspect]
     Dosage: 1 DF / D PO
     Route: 048
     Dates: end: 20081014
  2. PROPOFAN /00765201/ [Suspect]
     Dosage: 1 DF 3/D PO
     Route: 048
     Dates: end: 20081014
  3. CROMABAK [Concomitant]
  4. VASTAREL [Concomitant]
  5. STILNOX [Concomitant]

REACTIONS (6)
  - AGITATION [None]
  - APLASIA PURE RED CELL [None]
  - AUTONOMIC NERVOUS SYSTEM IMBALANCE [None]
  - DISORIENTATION [None]
  - HALLUCINATION, VISUAL [None]
  - THROMBOCYTOPENIA [None]
